FAERS Safety Report 5024023-7 (Version None)
Quarter: 2006Q2

REPORT INFORMATION
  Report Type: 
  Country: None (occurrence: None)
  Receive Date: 20060607
  Receipt Date: 20060525
  Transmission Date: 20061013
  Serious: Yes (Hospitalization, Other)
  Sender: FDA-Public Use
  Company Number: HQWYE306307JUN05

PATIENT
  Age: 76 Year
  Sex: Male
  Weight: 81.5 kg

DRUGS (32)
  1. RAPAMUNE [Suspect]
     Indication: PROPHYLAXIS AGAINST TRANSPLANT REJECTION
     Dosage: SEE IMAGE
     Route: 048
     Dates: start: 20050131, end: 20050609
  2. RAPAMUNE [Suspect]
     Indication: PROPHYLAXIS AGAINST TRANSPLANT REJECTION
     Dosage: SEE IMAGE
     Route: 048
     Dates: start: 20050613, end: 20050613
  3. RAPAMUNE [Suspect]
     Indication: PROPHYLAXIS AGAINST TRANSPLANT REJECTION
     Dosage: SEE IMAGE
     Route: 048
     Dates: start: 20050615, end: 20050618
  4. RAPAMUNE [Suspect]
     Indication: PROPHYLAXIS AGAINST TRANSPLANT REJECTION
     Dosage: SEE IMAGE
     Route: 048
     Dates: start: 20050619, end: 20050619
  5. RAPAMUNE [Suspect]
     Indication: PROPHYLAXIS AGAINST TRANSPLANT REJECTION
     Dosage: SEE IMAGE
     Route: 048
     Dates: start: 20050620
  6. RAPAMUNE [Suspect]
  7. ZENAPAX [Concomitant]
  8. PREDNISONE TAB [Concomitant]
  9. PROGRAF [Concomitant]
  10. COUMADIN [Concomitant]
  11. LOVENOX [Concomitant]
  12. DIGOXIN [Concomitant]
  13. CIPRO [Concomitant]
  14. FLOMAX [Concomitant]
  15. FLOVENT [Concomitant]
  16. COMBIVENT [Concomitant]
  17. ALBUTEROL [Concomitant]
  18. PROCRIT [Concomitant]
  19. TENORMIN [Concomitant]
  20. NORVASC [Concomitant]
  21. PANCREASE (PANCRELIPASE) [Concomitant]
  22. SODIUM BICARBONATE IN PLASTIC CONTAINER [Concomitant]
  23. CARDURA [Concomitant]
  24. PROTONIX [Concomitant]
  25. BACTRIM (SULFAMETHOXAZOE /TRIMETHOPRIM) [Concomitant]
  26. CALCIUM CARBONATE (CALCIUM CARBONATE) [Concomitant]
  27. PRAVACHOL [Concomitant]
  28. LANTUS [Concomitant]
  29. NOVOLOG [Concomitant]
  30. MULTIVITAMINS, PLAIN (MULTIVITAMINS, PLAIN) [Concomitant]
  31. MAGNESIUM OXIDE (MAGNESIUM OXIDE) [Concomitant]
  32. GABAPENTIN [Concomitant]

REACTIONS (15)
  - BLEEDING TIME PROLONGED [None]
  - BLOOD BICARBONATE DECREASED [None]
  - BLOOD CHLORIDE INCREASED [None]
  - BLOOD GLUCOSE INCREASED [None]
  - BLOOD SODIUM INCREASED [None]
  - DRUG INEFFECTIVE [None]
  - FLUID OVERLOAD [None]
  - HAEMATOCRIT DECREASED [None]
  - HAEMOGLOBIN DECREASED [None]
  - KIDNEY TRANSPLANT REJECTION [None]
  - OXYGEN SATURATION ABNORMAL [None]
  - POST PROCEDURAL HAEMORRHAGE [None]
  - PULMONARY OEDEMA [None]
  - RASH ERYTHEMATOUS [None]
  - URTICARIA [None]
